FAERS Safety Report 8975011 (Version 1)
Quarter: 2012Q4

REPORT INFORMATION
  Report Type: 
  Country: MX (occurrence: MX)
  Receive Date: 20121219
  Receipt Date: 20121219
  Transmission Date: 20130627
  Serious: Yes (Hospitalization, Other)
  Sender: FDA-Public Use
  Company Number: PHHY2012MX116856

PATIENT
  Age: 81 Year
  Sex: Male

DRUGS (1)
  1. EXELON PATCH [Suspect]
     Indication: DEMENTIA ALZHEIMER^S TYPE
     Dosage: 4.6 mg, daily
     Route: 062
     Dates: start: 20121115

REACTIONS (3)
  - Neoplasm [Not Recovered/Not Resolved]
  - Renal disorder [Not Recovered/Not Resolved]
  - Prostatic disorder [Not Recovered/Not Resolved]
